FAERS Safety Report 4697790-X (Version None)
Quarter: 2005Q2

REPORT INFORMATION
  Report Type: 
  Country: None (occurrence: None)
  Receive Date: 20050623
  Receipt Date: 20050617
  Transmission Date: 20051028
  Serious: Yes (Hospitalization)
  Sender: FDA-Public Use
  Company Number: FR-SOLVAY-00205002022

PATIENT
  Age: 29663 Day
  Sex: Female

DRUGS (6)
  1. SINTROM [Concomitant]
     Indication: ILL-DEFINED DISORDER
     Dosage: DAILY DOSE:  UNKNOWN
     Route: 065
     Dates: start: 20000101
  2. COVERSYL [Suspect]
     Indication: ILL-DEFINED DISORDER
     Dosage: DAILY DOSE:  UNKNOWN
     Route: 048
     Dates: start: 20041015, end: 20050527
  3. OMEPRAZOLE [Suspect]
     Indication: ILL-DEFINED DISORDER
     Dosage: DAILY DOSE: 20 MILLIGRAM(S)
     Route: 048
     Dates: start: 20030615, end: 20050502
  4. PRAXILENE [Suspect]
     Indication: ILL-DEFINED DISORDER
     Dosage: DAILY DOSE: 200 MILLIGRAM(S)
     Route: 048
     Dates: start: 20030615, end: 20050502
  5. DEROXAT [Suspect]
     Indication: ILL-DEFINED DISORDER
     Dosage: DAILY DOSE: 1 DOSAGE FORM
     Route: 048
     Dates: start: 20030615, end: 20050502
  6. CACIT D3 [Suspect]
     Indication: ILL-DEFINED DISORDER
     Dosage: DAILY DOSE:  UNKNOWN
     Route: 048
     Dates: start: 20030615, end: 20050502

REACTIONS (3)
  - DERMATITIS BULLOUS [None]
  - PEMPHIGOID [None]
  - PRURITUS [None]
